FAERS Safety Report 9894571 (Version 1)
Quarter: 2014Q1

REPORT INFORMATION
  Report Type: Spontaneous
  Country: US (occurrence: US)
  Receive Date: 20140213
  Receipt Date: 20140213
  Transmission Date: 20141002
  Serious: Yes (Death, Hospitalization)
  Sender: FDA-Public Use
  Company Number: US-BANPHARM-20142109

PATIENT
  Age: 37 Year
  Sex: Male

DRUGS (3)
  1. VALPROIC ACID UNKNOWN PRODUCT [Suspect]
     Route: 048
  2. LORAZEPAM [Concomitant]
  3. CLOZAPINE [Concomitant]

REACTIONS (2)
  - Death [Fatal]
  - Adverse drug reaction [Fatal]
